FAERS Safety Report 20635361 (Version 1)
Quarter: 2022Q1

REPORT INFORMATION
  Report Type: Spontaneous
  Country: DE (occurrence: DE)
  Receive Date: 20220325
  Receipt Date: 20220325
  Transmission Date: 20220423
  Serious: Yes (Other)
  Sender: FDA-Public Use
  Company Number: DE-ASTPRD-AER-2022-000751

PATIENT
  Age: 81 Year
  Sex: Male

DRUGS (2)
  1. XTANDI [Suspect]
     Active Substance: ENZALUTAMIDE
     Indication: Prostate cancer metastatic
     Dosage: 160 MG, ONCE DAILY (IN THE MORNING)
     Route: 048
  2. TRENANTONE [Suspect]
     Active Substance: LEUPROLIDE ACETATE
     Indication: Prostate cancer metastatic
     Dosage: 11.25 MG, EVERY 3 MONTHS
     Route: 058
     Dates: start: 202109, end: 20220106

REACTIONS (2)
  - Thrombosis [Recovering/Resolving]
  - Limb deformity [Not Recovered/Not Resolved]

NARRATIVE: CASE EVENT DATE: 20211101
